FAERS Safety Report 12460198 (Version 3)
Quarter: 2016Q3

REPORT INFORMATION
  Report Type: Spontaneous
  Country: US (occurrence: US)
  Receive Date: 20160613
  Receipt Date: 20160819
  Transmission Date: 20161109
  Serious: Yes (Other)
  Sender: FDA-Public Use
  Company Number: US-SA-2016SA108200

PATIENT
  Age: 45 Year
  Sex: Female

DRUGS (10)
  1. AMPYRA [Concomitant]
     Active Substance: DALFAMPRIDINE
  2. NITROFURANTOIN. [Concomitant]
     Active Substance: NITROFURANTOIN
  3. GABAPENTIN. [Concomitant]
     Active Substance: GABAPENTIN
  4. METFORMIN [Concomitant]
     Active Substance: METFORMIN HYDROCHLORIDE
  5. LANTUS [Concomitant]
     Active Substance: INSULIN GLARGINE
  6. OXYBUTYNIN [Concomitant]
     Active Substance: OXYBUTYNIN
  7. AUBAGIO [Suspect]
     Active Substance: TERIFLUNOMIDE
     Indication: MULTIPLE SCLEROSIS
     Route: 048
     Dates: start: 20131003
  8. AUBAGIO [Suspect]
     Active Substance: TERIFLUNOMIDE
     Indication: MULTIPLE SCLEROSIS
     Route: 048
     Dates: start: 20131003
  9. NOVOLOG [Concomitant]
     Active Substance: INSULIN ASPART
  10. BYETTA [Concomitant]
     Active Substance: EXENATIDE

REACTIONS (2)
  - Seizure [Unknown]
  - Fall [Unknown]

NARRATIVE: CASE EVENT DATE: 2016
